FAERS Safety Report 6086473-X (Version None)
Quarter: 2009Q1

REPORT INFORMATION
  Report Type: 
  Country: None (occurrence: None)
  Receive Date: 20090223
  Receipt Date: 20090211
  Transmission Date: 20090719
  Serious: Yes (Hospitalization, Other)
  Sender: FDA-Public Use
  Company Number: PHBS2009IT00784

PATIENT
  Age: 74 Year
  Sex: Female

DRUGS (2)
  1. ZOLEDRONIC ACID [Suspect]
     Dosage: RECEIVED 15 CYCLES
     Dates: start: 20070501, end: 20080801
  2. CAPECITABINE [Suspect]
     Dosage: 1000 MG, QD

REACTIONS (2)
  - MALIGNANT NEOPLASM PROGRESSION [None]
  - SEPSIS [None]
